FAERS Safety Report 21534793 (Version 1)
Quarter: 2022Q4

REPORT INFORMATION
  Report Type: Spontaneous
  Country: US (occurrence: US)
  Receive Date: 20221101
  Receipt Date: 20221101
  Transmission Date: 20230112
  Serious: No
  Sender: FDA-Public Use
  Company Number: US-MIGRATION_PFIZER-2022BHV001854

PATIENT
  Age: 22 Year
  Sex: Female
  Weight: 81.720 kg

DRUGS (2)
  1. NURTEC ODT [Suspect]
     Active Substance: RIMEGEPANT SULFATE
     Indication: Migraine
     Dosage: 1 TABLET; FREQUENCY OF ADMINISTRATION: PER PATIENT, NOT VERY OFTEN MAYBE LIKE ONCE EVERY TWO WEEKS T
     Route: 048
     Dates: start: 2020, end: 202201
  2. NURTEC ODT [Suspect]
     Active Substance: RIMEGEPANT SULFATE
     Indication: Headache

REACTIONS (3)
  - Oropharyngeal discomfort [Recovered/Resolved]
  - Pain [Unknown]
  - Therapeutic product effect incomplete [Unknown]
